FAERS Safety Report 8246698-1 (Version None)
Quarter: 2012Q1

REPORT INFORMATION
  Report Type: 
  Country: None (occurrence: None)
  Receive Date: 20120330
  Receipt Date: 20120316
  Transmission Date: 20120608
  Serious: Yes (Other)
  Sender: FDA-Public Use
  Company Number: BR-AMGEN-BRASP2012018686

PATIENT
  Age: 31 Year
  Sex: Female
  Weight: 170 kg

DRUGS (7)
  1. ENBREL [Suspect]
     Indication: RHEUMATOID ARTHRITIS
     Dosage: 50 MG, ONCE WEEKLY
     Route: 058
     Dates: start: 20111101
  2. ATENOLOL [Concomitant]
     Dosage: UNK
  3. OMEPRAZOLE [Concomitant]
     Dosage: UNK
  4. METHOTREXATE [Concomitant]
     Dosage: UNK
  5. ENALAPRIL [Concomitant]
     Dosage: UNK
  6. METICORTEN [Concomitant]
     Dosage: UNK
  7. CODEX                              /00116401/ [Concomitant]
     Dosage: UNK

REACTIONS (4)
  - PAIN [None]
  - ARTHROPATHY [None]
  - BEDRIDDEN [None]
  - INJECTION SITE PAIN [None]
